FAERS Safety Report 4588436-X (Version None)
Quarter: 2005Q1

REPORT INFORMATION
  Report Type: 
  Country: None (occurrence: None)
  Receive Date: 20050216
  Receipt Date: 20050201
  Transmission Date: 20050727
  Serious: Yes (Other)
  Sender: FDA-Public Use
  Company Number: USA050188098

PATIENT
  Age: 73 Year
  Sex: Male
  Weight: 82 kg

DRUGS (4)
  1. ONCOVIN [Suspect]
     Indication: MANTLE CELL LYMPHOMA
     Dosage: 2 MG
     Dates: start: 20020802, end: 20021115
  2. DOXORUBICIN HCL [Concomitant]
  3. CYCLOPHOSPHAMIDE [Concomitant]
  4. RITUXAN [Concomitant]

REACTIONS (2)
  - NEUROPATHY [None]
  - PERIPHERAL VASCULAR DISORDER [None]
